FAERS Safety Report 13722006 (Version 3)
Quarter: 2017Q4

REPORT INFORMATION
  Report Type: Spontaneous
  Country: US (occurrence: US)
  Receive Date: 20170706
  Receipt Date: 20171102
  Transmission Date: 20180320
  Serious: No
  Sender: FDA-Public Use
  Company Number: US-PFIZER INC-2017282245

PATIENT
  Age: 47 Year
  Sex: Male

DRUGS (1)
  1. METHOTREXATE SODIUM. [Suspect]
     Active Substance: METHOTREXATE SODIUM
     Dosage: 20 MG, WEEKLY (2.5MG TAKE 8 TABS WEEKLY)

REACTIONS (6)
  - Drug ineffective [Unknown]
  - Dry mouth [Unknown]
  - Dry eye [Unknown]
  - Fatigue [Unknown]
  - Eye irritation [Unknown]
  - Ocular hyperaemia [Unknown]
